FAERS Safety Report 10760706 (Version 1)
Quarter: 2015Q1

REPORT INFORMATION
  Report Type: Spontaneous
  Country: MA (occurrence: MA)
  Receive Date: 20150204
  Receipt Date: 20150204
  Transmission Date: 20150721
  Serious: Yes (Other)
  Sender: FDA-Public Use
  Company Number: MA-CIPLA LTD.-2015MA00879

PATIENT

DRUGS (3)
  1. ONDANSETRON [Suspect]
     Active Substance: ONDANSETRON
     Dosage: 8 MG
  2. PACLITAXEL. [Suspect]
     Active Substance: PACLITAXEL
     Dosage: 260 MG
  3. CARBOPLATIN. [Suspect]
     Active Substance: CARBOPLATIN
     Dosage: 350 MG
     Dates: start: 20150115

REACTIONS (3)
  - Erythema [Unknown]
  - Anaphylactic shock [Unknown]
  - Tachycardia [Unknown]

NARRATIVE: CASE EVENT DATE: 20150115
